FAERS Safety Report 7470321-7 (Version None)
Quarter: 2011Q2

REPORT INFORMATION
  Report Type: 
  Country: None (occurrence: None)
  Receive Date: 20110510
  Receipt Date: 20090417
  Transmission Date: 20111010
  Serious: Yes (Hospitalization, Other)
  Sender: FDA-Public Use
  Company Number: US-BAYER-2011-006438

PATIENT
  Age: 61 Year
  Sex: Female
  Weight: 61.678 kg

DRUGS (9)
  1. VERSED [Concomitant]
     Dosage: UNK
     Route: 042
     Dates: start: 20060418, end: 20060418
  2. INSULIN [INSULIN] [Concomitant]
     Dosage: 10 UNITS
     Route: 058
     Dates: start: 20060418, end: 20060418
  3. PHENYLEPHRINE [PHENYLEPHRINE] [Concomitant]
     Dosage: UNK
     Route: 042
     Dates: start: 20060418, end: 20060418
  4. FRESH FROZEN PLASMA [Concomitant]
     Dosage: 3 UNITS
     Route: 042
     Dates: start: 20060418, end: 20060418
  5. PROTAMINE SULFATE [Concomitant]
     Dosage: UNK
     Route: 042
     Dates: start: 20060418, end: 20060418
  6. PLATELETS [Concomitant]
     Dosage: 7 PACKS
     Route: 042
     Dates: start: 20060418, end: 20060418
  7. RED BLOOD CELLS, CONCENTRATED [Concomitant]
     Dosage: 2 UNITS
     Route: 042
     Dates: start: 20060418, end: 20060418
  8. VANCOMYCIN [Concomitant]
     Dosage: 500 MG, UNK
     Route: 042
     Dates: start: 20060418, end: 20060418
  9. TRASYLOL [Suspect]
     Indication: CORONARY ARTERY BYPASS
     Dosage: SOLUTION FOR INFUSION
     Route: 042
     Dates: start: 20060418

REACTIONS (13)
  - RENAL FAILURE CHRONIC [None]
  - RENAL FAILURE ACUTE [None]
  - UNEVALUABLE EVENT [None]
  - EMOTIONAL DISORDER [None]
  - STRESS [None]
  - RENAL FAILURE [None]
  - RENAL IMPAIRMENT [None]
  - ANXIETY [None]
  - FEAR [None]
  - PAIN [None]
  - MULTI-ORGAN FAILURE [None]
  - MYOCARDIAL INFARCTION [None]
  - RENAL INJURY [None]
